FAERS Safety Report 8553789-4 (Version None)
Quarter: 2012Q3

REPORT INFORMATION
  Report Type: 
  Country: None (occurrence: None)
  Receive Date: 20120725
  Receipt Date: 20120725
  Transmission Date: 20120928
  Serious: Yes (Other)
  Sender: FDA-Public Use
  Company Number: None

PATIENT
  Sex: Female

DRUGS (2)
  1. SYNTHROID [Concomitant]
  2. ZETIA [Suspect]
     Indication: BLOOD CHOLESTEROL INCREASED
     Dosage: 10 MG ONCE A DAY PO
     Route: 048
     Dates: start: 20120624, end: 20120716

REACTIONS (5)
  - RASH GENERALISED [None]
  - DIZZINESS [None]
  - DYSPHAGIA [None]
  - NAUSEA [None]
  - FATIGUE [None]
